FAERS Safety Report 7534792-X (Version None)
Quarter: 2011Q2

REPORT INFORMATION
  Report Type: 
  Country: None (occurrence: None)
  Receive Date: 20110609
  Receipt Date: 20080821
  Transmission Date: 20111010
  Serious: Yes (Death, Hospitalization, Other)
  Sender: FDA-Public Use
  Company Number: PHFR2008GB01266

PATIENT
  Sex: Male

DRUGS (13)
  1. HALOPERIDOL [Concomitant]
     Indication: SCHIZOPHRENIA
  2. DIAZEPAM [Concomitant]
     Indication: AGITATION
     Dosage: 10 MG, QD
     Route: 048
  3. ASPIRIN [Concomitant]
     Dosage: UNKNOWN
     Route: 065
  4. SIMVASTATIN [Concomitant]
     Indication: LIPIDS INCREASED
     Dosage: 10 MG, UNK
     Route: 048
     Dates: start: 20061004
  5. CLOZAPINE [Suspect]
     Dosage: UNK
     Route: 048
     Dates: start: 20060511
  6. PROCYCLIDINE HYDROCHLORIDE 2MG TAB [Concomitant]
     Indication: EXTRAPYRAMIDAL DISORDER
     Dosage: UNKNOWN
     Route: 065
  7. FUROSEMIDE [Concomitant]
     Indication: HYPERTENSION
     Dosage: 40 MG/DAY
     Route: 048
     Dates: start: 20060522
  8. HALOPERIDOL [Concomitant]
     Indication: PSYCHOTIC DISORDER
     Dosage: 10 MG, PRN
     Route: 048
     Dates: start: 20060510
  9. CLOZAPINE [Suspect]
     Indication: SCHIZOPHRENIA
     Dosage: 300 MG,
     Route: 048
     Dates: start: 20030601, end: 20031201
  10. ISOSORBIDE MONONITRATE [Concomitant]
     Indication: MYOCARDIAL ISCHAEMIA
     Dosage: 20 MG, UNK
     Route: 048
     Dates: start: 20060531
  11. ALBUTEROL [Concomitant]
     Dosage: UNKNOWN
  12. CLOZAPINE [Suspect]
     Dosage: 250 MG, UNK
     Route: 048
     Dates: start: 20061101
  13. RAMIPRIL [Concomitant]
     Indication: HYPERTENSION
     Dosage: 2.5 MG, UNK
     Route: 048
     Dates: start: 20061004

REACTIONS (18)
  - HAEMATURIA [None]
  - ANAEMIA [None]
  - BENIGN PROSTATIC HYPERPLASIA [None]
  - RED BLOOD CELL COUNT DECREASED [None]
  - DIABETIC COMPLICATION [None]
  - PROSTATOMEGALY [None]
  - NEOPLASM MALIGNANT [None]
  - RENAL FAILURE [None]
  - HYPOPHAGIA [None]
  - HAEMOGLOBIN DECREASED [None]
  - BLOOD CREATININE INCREASED [None]
  - OBSTRUCTIVE UROPATHY [None]
  - GASTROINTESTINAL HAEMORRHAGE [None]
  - PULMONARY OEDEMA [None]
  - AZOTAEMIA [None]
  - BLOOD UREA INCREASED [None]
  - COMA [None]
  - BLADDER OBSTRUCTION [None]
